FAERS Safety Report 6519380-6 (Version None)
Quarter: 2009Q4

REPORT INFORMATION
  Report Type: 
  Country: None (occurrence: None)
  Receive Date: 20091224
  Receipt Date: 20091224
  Transmission Date: 20100525
  Serious: No
  Sender: FDA-Public Use
  Company Number: None

PATIENT
  Sex: Female
  Weight: 83.6433 kg

DRUGS (2)
  1. OXALIPLATIN [Suspect]
     Indication: COLON CANCER
     Dosage: 197 MG - IVSS
     Route: 042
     Dates: start: 20091217
  2. OXALIPLATIN [Suspect]

REACTIONS (3)
  - ERYTHEMA [None]
  - INFUSION RELATED REACTION [None]
  - PRURITUS [None]
